FAERS Safety Report 15101277 (Version 2)
Quarter: 2018Q3

REPORT INFORMATION
  Report Type: Spontaneous
  Country: US (occurrence: US)
  Receive Date: 20180703
  Receipt Date: 20180904
  Transmission Date: 20181010
  Serious: No
  Sender: FDA-Public Use
  Company Number: US-GLENMARK PHARMACEUTICALS-2017GMK029543

PATIENT

DRUGS (1)
  1. MUPIROCIN. [Suspect]
     Active Substance: MUPIROCIN
     Indication: GROIN INFECTION
     Dosage: UNK
     Route: 065

REACTIONS (4)
  - Drug administration error [Unknown]
  - Product packaging quantity issue [Unknown]
  - Product physical issue [Unknown]
  - No adverse event [Unknown]
